FAERS Safety Report 14285546 (Version 8)
Quarter: 2022Q1

REPORT INFORMATION
  Report Type: Spontaneous
  Country: US (occurrence: US)
  Receive Date: 20171214
  Receipt Date: 20220112
  Transmission Date: 20220423
  Serious: Yes (Other)
  Sender: FDA-Public Use
  Company Number: US-PFIZER INC-2017533033

PATIENT
  Age: 66 Year
  Sex: Female
  Weight: 49.887 kg

DRUGS (2)
  1. IBRANCE [Suspect]
     Active Substance: PALBOCICLIB
     Indication: Breast cancer female
     Dosage: 100 MG, CYCLIC (3 WEEKS ON)
  2. IBRANCE [Suspect]
     Active Substance: PALBOCICLIB
     Indication: Breast cancer female
     Dosage: 100 MG, CYCLIC (1 TAB(S) ORALLY ONCE A DAY X14 DAYS ON AND 7 DAYS OFF)
     Route: 048

REACTIONS (4)
  - Swelling face [Unknown]
  - Nasopharyngitis [Unknown]
  - Illness [Unknown]
  - Tooth disorder [Unknown]
